FAERS Safety Report 10247552 (Version 1)
Quarter: 2014Q2

REPORT INFORMATION
  Report Type: Spontaneous
  Country: IT (occurrence: None)
  Receive Date: 20140617
  Receipt Date: 20140617
  Transmission Date: 20141212
  Serious: Yes (Other)
  Sender: FDA-Public Use
  Company Number: 7297162

PATIENT
  Age: 52 Year
  Sex: Female

DRUGS (1)
  1. EUTIROX [Suspect]
     Indication: HYPOTHYROIDISM
     Dosage: 1 DF (1 DF, 1 IN 1 D), ORAL
     Route: 048
     Dates: start: 20140101, end: 20140122

REACTIONS (2)
  - Chest pain [None]
  - Arrhythmia [None]
